FAERS Safety Report 5076281-0 (Version None)
Quarter: 2006Q3

REPORT INFORMATION
  Report Type: 
  Country: None (occurrence: None)
  Receive Date: 20060804
  Receipt Date: 20060731
  Transmission Date: 20061208
  Serious: Yes (Hospitalization)
  Sender: FDA-Public Use
  Company Number: E2090-00056-SPO-JP

PATIENT
  Age: 46 Year
  Sex: Male

DRUGS (6)
  1. ZONISAMIDE [Suspect]
     Indication: PARKINSON'S DISEASE
     Dosage: 100 MG,  1 IN 1 D, ORAL
     Route: 048
     Dates: start: 20060614, end: 20060619
  2. NEODOPASTON (SINEMET) [Suspect]
     Dosage: 300 MG, ORAL    10 YEARS AGO
     Route: 048
  3. FP (SELEGILINE) [Suspect]
     Dosage: 10 MG, ORAL  3 YEARS AGO
     Route: 048
  4. CABERGOLINE [Suspect]
     Dosage: 5 MG, ORAL   3 YEARS AGO
     Route: 048
  5. ARTANE [Concomitant]
  6. PARLODEL [Concomitant]

REACTIONS (3)
  - DELUSION [None]
  - DRUG INTERACTION [None]
  - HALLUCINATION [None]
